FAERS Safety Report 15420115 (Version 2)
Quarter: 2018Q4

REPORT INFORMATION
  Report Type: Spontaneous
  Country: BR (occurrence: BR)
  Receive Date: 20180924
  Receipt Date: 20181010
  Transmission Date: 20190204
  Serious: Yes (Other)
  Sender: FDA-Public Use
  Company Number: PHHY2018BR105127

PATIENT
  Age: 36 Year
  Sex: Male
  Weight: 108 kg

DRUGS (1)
  1. RITALIN LA [Suspect]
     Active Substance: METHYLPHENIDATE HYDROCHLORIDE
     Indication: NARCOLEPSY
     Dosage: UNK UNK, QD
     Route: 048
     Dates: start: 2010

REACTIONS (1)
  - Drug dependence [Unknown]
